FAERS Safety Report 4604659-5 (Version None)
Quarter: 2005Q1

REPORT INFORMATION
  Report Type: 
  Country: None (occurrence: None)
  Receive Date: 20050116
  Receipt Date: 20050103
  Transmission Date: 20050727
  Serious: No
  Sender: FDA-Public Use
  Company Number: PHEH2005US00535

PATIENT
  Age: 63 Year
  Sex: Female

DRUGS (5)
  1. GLEEVEC [Suspect]
     Indication: CHRONIC MYELOID LEUKAEMIA
     Dosage: 400 MG, QD, ORAL
     Route: 048
     Dates: start: 20010901
  2. VICODIN [Suspect]
  3. PLAVIX [Concomitant]
  4. ATENOLOL [Concomitant]
  5. LESCOL [Concomitant]

REACTIONS (2)
  - BLOOD URINE [None]
  - URINARY TRACT INFECTION [None]
